FAERS Safety Report 11194647 (Version 2)
Quarter: 2015Q3

REPORT INFORMATION
  Report Type: Spontaneous
  Country: IT (occurrence: IT)
  Receive Date: 20150617
  Receipt Date: 20150805
  Transmission Date: 20151125
  Serious: Yes (Hospitalization)
  Sender: FDA-Public Use
  Company Number: IT-JNJFOC-20150610116

PATIENT
  Age: 58 Year
  Sex: Male

DRUGS (4)
  1. CIPROXIN 500 [Suspect]
     Active Substance: CIPROFLOXACIN HYDROCHLORIDE
     Indication: PROSTATITIS
     Route: 048
     Dates: start: 20141101, end: 20141105
  2. IBUPROFEN. [Suspect]
     Active Substance: IBUPROFEN
     Route: 048
  3. NORFLOXACIN [Suspect]
     Active Substance: NORFLOXACIN
     Indication: PROSTATITIS
     Route: 048
     Dates: start: 20141105, end: 20141108
  4. IBUPROFEN. [Suspect]
     Active Substance: IBUPROFEN
     Indication: INFLAMMATION
     Dosage: 4 DAYS
     Route: 048
     Dates: start: 20141112, end: 20141115

REACTIONS (6)
  - Acute kidney injury [Unknown]
  - Retching [Unknown]
  - Intestinal obstruction [Unknown]
  - Vomiting [Unknown]
  - Tubulointerstitial nephritis [Unknown]
  - Abdominal pain [Unknown]

NARRATIVE: CASE EVENT DATE: 20141115
